FAERS Safety Report 8844747 (Version 2)
Quarter: 2013Q1

REPORT INFORMATION
  Report Type: Spontaneous
  Country: US (occurrence: None)
  Receive Date: 20121016
  Receipt Date: 20121031
  Transmission Date: 20140127
  Serious: Yes (Hospitalization, Other)
  Sender: FDA-Public Use
  Company Number: 2011029432

PATIENT
  Sex: Female
  Weight: 87.54 kg

DRUGS (4)
  1. HUMATE-P [Suspect]
     Indication: VON WILLEBRAND^S DISEASE
     Dosage: 40 IU/KG 3X/WEEK; AT DETERMINATION OF PREGNANCY INTRAVENOUS
     Dates: start: 2011
  2. HUMATE-P [Suspect]
     Indication: PROPHYLAXIS
     Dosage: 40 IU/KG 3X/WEEK; AT DETERMINATION OF PREGNANCY INTRAVENOUS
     Dates: start: 2011
  3. IRON (IRON) [Concomitant]
  4. PLATELETS (PLATELETS, HUMAN BLOOD) [Concomitant]

REACTIONS (3)
  - Haemorrhage [None]
  - Contusion [None]
  - Haemoglobin decreased [None]
